FAERS Safety Report 8694837 (Version 2)
Quarter: 2013Q4

REPORT INFORMATION
  Report Type: Spontaneous
  Country: US (occurrence: US)
  Receive Date: 20120731
  Receipt Date: 20131107
  Transmission Date: 20140711
  Serious: Yes (Other)
  Sender: FDA-Public Use
  Company Number: US-MSD-1207USA003696

PATIENT
  Sex: 0

DRUGS (1)
  1. MK-N615 [Suspect]
     Indication: PATENT DUCTUS ARTERIOSUS

REACTIONS (1)
  - Haemorrhage intracranial [Unknown]
